FAERS Safety Report 16170814 (Version 1)
Quarter: 2019Q2

REPORT INFORMATION
  Report Type: Spontaneous
  Country: FR (occurrence: FR)
  Receive Date: 20190408
  Receipt Date: 20190408
  Transmission Date: 20190711
  Serious: Yes (Other)
  Sender: FDA-Public Use
  Company Number: FR-MYLANLABS-2019M1031511

PATIENT
  Age: 61 Year
  Sex: Female

DRUGS (2)
  1. METHOTREXATE. [Suspect]
     Active Substance: METHOTREXATE
     Indication: PRODUCT USED FOR UNKNOWN INDICATION
     Dosage: 15 UNK, QW (DOSE: 15 (UNSPECIFIED UNIT))
     Route: 058
     Dates: start: 2010
  2. HUMIRA [Suspect]
     Active Substance: ADALIMUMAB
     Indication: RHEUMATOID ARTHRITIS
     Dosage: 40 MILLIGRAM, EVERY 15 DAY
     Route: 058
     Dates: start: 201803, end: 201807

REACTIONS (4)
  - Eosinophilia [Unknown]
  - Fatigue [Unknown]
  - Interstitial lung disease [Recovering/Resolving]
  - Hypersensitivity pneumonitis [Unknown]
